FAERS Safety Report 25336427 (Version 1)
Quarter: 2025Q2

REPORT INFORMATION
  Report Type: Spontaneous
  Country: FR (occurrence: FR)
  Receive Date: 20250520
  Receipt Date: 20250520
  Transmission Date: 20250716
  Serious: Yes (Other)
  Sender: INSUD PHARMA
  Company Number: FR-EXELTIS PHARMACEUTICAL HOLDING, S.L.-2505FR03809

PATIENT
  Age: 45 Year
  Sex: Female

DRUGS (1)
  1. DROSPIRENONE [Suspect]
     Active Substance: DROSPIRENONE
     Indication: Contraception
     Dosage: 4 MILLIGRAM, QD
     Route: 048

REACTIONS (2)
  - Dermatitis bullous [Unknown]
  - Alopecia [Unknown]
